FAERS Safety Report 5591398-X (Version None)
Quarter: 2008Q1

REPORT INFORMATION
  Report Type: 
  Country: None (occurrence: None)
  Receive Date: 20080111
  Receipt Date: 20080111
  Transmission Date: 20080703
  Serious: Yes (Life-Threatening, Other)
  Sender: FDA-Public Use
  Company Number: None

PATIENT
  Age: 42 Year
  Sex: Male
  Weight: 95.2554 kg

DRUGS (1)
  1. CHANTIX [Suspect]
     Indication: SMOKING CESSATION THERAPY
     Dosage: 2 MG TWICE A DAY PO
     Route: 048
     Dates: start: 20071127, end: 20071215

REACTIONS (10)
  - AGGRESSION [None]
  - ALCOHOL POISONING [None]
  - ALCOHOL USE [None]
  - ANGER [None]
  - EMOTIONAL DISORDER [None]
  - FEAR [None]
  - HEAD INJURY [None]
  - MOOD ALTERED [None]
  - SELF ESTEEM DECREASED [None]
  - SUICIDAL IDEATION [None]
